FAERS Safety Report 5376689-X (Version None)
Quarter: 2007Q2

REPORT INFORMATION
  Report Type: 
  Country: None (occurrence: None)
  Receive Date: 20070629
  Receipt Date: 20070621
  Transmission Date: 20071010
  Serious: Yes (Hospitalization, Other)
  Sender: FDA-Public Use
  Company Number: 2007BI010750

PATIENT
  Age: 48 Year
  Sex: Male

DRUGS (9)
  1. NATALIZUMAB [Suspect]
     Indication: MULTIPLE SCLEROSIS
     Dosage: 300 MG;QM;IV
     Route: 042
     Dates: start: 20070308, end: 20070405
  2. ZOLOFT [Concomitant]
  3. FOSAMAX [Concomitant]
  4. DETROL [Concomitant]
  5. TIZANIDINE HCL [Concomitant]
  6. VALIUM [Concomitant]
  7. MOM [Concomitant]
  8. TYLENOL EXTRA STRENGTH [Concomitant]
  9. DUCOLAX [Concomitant]

REACTIONS (2)
  - DEEP VEIN THROMBOSIS [None]
  - PULMONARY EMBOLISM [None]
